FAERS Safety Report 9189606 (Version 1)
Quarter: 2013Q1

REPORT INFORMATION
  Report Type: Spontaneous
  Country: US (occurrence: US)
  Receive Date: 20130326
  Receipt Date: 20130326
  Transmission Date: 20140127
  Serious: Yes (Death)
  Sender: FDA-Public Use
  Company Number: US-JNJFOC-20130308631

PATIENT
  Sex: 0

DRUGS (3)
  1. RISPERIDONE [Suspect]
     Indication: PSYCHOTIC DISORDER
     Route: 065
  2. RISPERIDONE [Suspect]
     Indication: SCHIZOAFFECTIVE DISORDER
     Route: 065
  3. RISPERIDONE [Suspect]
     Indication: SCHIZOPHRENIA
     Route: 065

REACTIONS (9)
  - Arteriosclerosis [Fatal]
  - Hypertensive heart disease [Fatal]
  - Coronary artery disease [Fatal]
  - Coronary artery occlusion [Fatal]
  - Cardiac failure congestive [Fatal]
  - Myocarditis [Fatal]
  - Myocardial infarction [Fatal]
  - Congestive cardiomyopathy [Fatal]
  - Arrhythmia [Fatal]
